FAERS Safety Report 5615217-8 (Version None)
Quarter: 2008Q1

REPORT INFORMATION
  Report Type: 
  Country: None (occurrence: None)
  Receive Date: 20080131
  Receipt Date: 20080118
  Transmission Date: 20080703
  Serious: Yes (Hospitalization)
  Sender: FDA-Public Use
  Company Number: CIP08000080

PATIENT
  Age: 56 Year
  Sex: Female

DRUGS (7)
  1. ACTONEL [Suspect]
     Indication: OSTEOPOROSIS
     Dosage: 35 MG ONCE WEEKLY, ORAL
     Route: 048
     Dates: start: 20050424, end: 20071201
  2. LOSEC I.V. [Concomitant]
  3. ZANTAC 150 [Concomitant]
  4. WARFARIN SODIUM [Concomitant]
  5. SERETIDE               (FLUTICASONE PROPIONATE, SALMETEROL) [Concomitant]
  6. SALAZOPYRIN          (SULFASALAZIN) [Concomitant]
  7. SERETIDE [Concomitant]

REACTIONS (5)
  - ACQUIRED OESOPHAGEAL WEB [None]
  - ARTHRALGIA [None]
  - CHOKING [None]
  - FOOD INTOLERANCE [None]
  - GASTROOESOPHAGEAL REFLUX DISEASE [None]
